FAERS Safety Report 12648075 (Version 2)
Quarter: 2016Q3

REPORT INFORMATION
  Report Type: Report from Study
  Country: FR (occurrence: FR)
  Receive Date: 20160812
  Receipt Date: 20160831
  Transmission Date: 20161109
  Serious: Yes (Hospitalization)
  Sender: FDA-Public Use
  Company Number: FR-SA-2016SA140634

PATIENT
  Age: 13 Month
  Sex: Male
  Weight: 8.1 kg

DRUGS (7)
  1. ZOVIRAX [Concomitant]
     Active Substance: ACYCLOVIR
     Indication: ANTIVIRAL TREATMENT
     Route: 048
     Dates: start: 20150813
  2. CAMPATH [Suspect]
     Active Substance: ALEMTUZUMAB
     Indication: LYMPHOHISTIOCYTOSIS
     Dosage: 2 DOSES WEEKLY
     Route: 042
     Dates: start: 20160224, end: 20160225
  3. METHYLPREDNISOLONE. [Suspect]
     Active Substance: METHYLPREDNISOLONE
     Indication: LYMPHOHISTIOCYTOSIS
     Route: 065
  4. CELLCEPT [Concomitant]
     Active Substance: MYCOPHENOLATE MOFETIL\MYCOPHENOLATE MOFETIL HYDROCHLORIDE
     Indication: PROPHYLAXIS AGAINST GRAFT VERSUS HOST DISEASE
     Route: 048
     Dates: start: 20160430
  5. CICLOSPORIN [Concomitant]
     Active Substance: CYCLOSPORINE
     Indication: PROPHYLAXIS AGAINST GRAFT VERSUS HOST DISEASE
     Route: 048
     Dates: start: 20160430
  6. CYCLOSPORIN [Suspect]
     Active Substance: CYCLOSPORINE
     Indication: LYMPHOHISTIOCYTOSIS
     Route: 065
  7. SOLUPRED [Concomitant]
     Active Substance: PREDNISOLONE
     Indication: STEROID THERAPY
     Route: 048
     Dates: start: 20160531

REACTIONS (4)
  - Sepsis [Recovered/Resolved]
  - Seizure [Recovered/Resolved]
  - Staphylococcal infection [Recovered/Resolved]
  - Pyrexia [Recovered/Resolved]

NARRATIVE: CASE EVENT DATE: 20160728
